FAERS Safety Report 18477300 (Version 1)
Quarter: 2020Q4

REPORT INFORMATION
  Report Type: Spontaneous
  Country: NL (occurrence: NL)
  Receive Date: 20201107
  Receipt Date: 20201107
  Transmission Date: 20210114
  Serious: Yes (Other)
  Sender: FDA-Public Use
  Company Number: NL-TEVA-2020-NL-1844867

PATIENT
  Sex: Male

DRUGS (1)
  1. BUDESONIDE NEUSSPRAY 100UG/DO / BRAND NAME NOT SPECIFIED [Suspect]
     Active Substance: BUDESONIDE
     Indication: RHINITIS ALLERGIC
     Dosage: 400 MICROGRAM DAILY; 1X DAILY 2 DOSES PER NOSTRIL, THERAPY  END DATE: ASKED BUT UNKNOWN
     Route: 065
     Dates: start: 2018

REACTIONS (8)
  - Face oedema [Recovered/Resolved]
  - Overdose [Recovered/Resolved]
  - Product complaint [Unknown]
  - Condition aggravated [Unknown]
  - Fungal infection [Unknown]
  - Headache [Unknown]
  - Erythema [Recovered/Resolved]
  - Hypersensitivity [Recovered/Resolved]
